FAERS Safety Report 6426952-6 (Version None)
Quarter: 2009Q4

REPORT INFORMATION
  Report Type: 
  Country: None (occurrence: None)
  Receive Date: 20091030
  Receipt Date: 20091016
  Transmission Date: 20100525
  Serious: Yes (Death)
  Sender: FDA-Public Use
  Company Number: 2009AC000261

PATIENT
  Age: 11 Year
  Sex: Male

DRUGS (2)
  1. DIGOXIN [Suspect]
     Dosage: 125 MG;QD;PO
     Route: 048
     Dates: start: 20080301
  2. CARVEDILOL [Concomitant]

REACTIONS (21)
  - ABDOMINAL PAIN [None]
  - ASTHENIA [None]
  - BLOOD CREATININE INCREASED [None]
  - BLOOD POTASSIUM DECREASED [None]
  - BLOOD UREA INCREASED [None]
  - CARDIAC ARREST [None]
  - CARDIAC MURMUR [None]
  - CARDIOMYOPATHY [None]
  - CHEST PAIN [None]
  - CONGESTIVE CARDIOMYOPATHY [None]
  - ECONOMIC PROBLEM [None]
  - EYE ROLLING [None]
  - HEART RATE INCREASED [None]
  - MITRAL VALVE INCOMPETENCE [None]
  - MULTIPLE INJURIES [None]
  - MUSCULOSKELETAL STIFFNESS [None]
  - NAUSEA [None]
  - RESPIRATORY FAILURE [None]
  - TRICUSPID VALVE INCOMPETENCE [None]
  - UNRESPONSIVE TO STIMULI [None]
  - VOMITING [None]
